FAERS Safety Report 20862836 (Version 2)
Quarter: 2022Q2

REPORT INFORMATION
  Report Type: Spontaneous
  Country: US (occurrence: US)
  Receive Date: 20220523
  Receipt Date: 20220616
  Transmission Date: 20220720
  Serious: No
  Sender: FDA-Public Use
  Company Number: US-GILEAD-2022-0581631

PATIENT
  Sex: Female

DRUGS (1)
  1. EPCLUSA [Suspect]
     Active Substance: SOFOSBUVIR\VELPATASVIR
     Indication: Chronic hepatitis C
     Dosage: 1 DOSAGE FORM, QD
     Route: 048

REACTIONS (3)
  - Insomnia [Unknown]
  - Fatigue [Unknown]
  - Product dose omission in error [Unknown]
